FAERS Safety Report 23093200 (Version 1)
Quarter: 2023Q4

REPORT INFORMATION
  Report Type: Spontaneous
  Country: CN (occurrence: CN)
  Receive Date: 20231022
  Receipt Date: 20231022
  Transmission Date: 20240109
  Serious: Yes (Other)
  Sender: FDA-Public Use
  Company Number: CN-SA-SAC20231020000986

PATIENT
  Age: 64 Year
  Sex: Male

DRUGS (1)
  1. DUPIXENT [Suspect]
     Active Substance: DUPILUMAB
     Indication: Symptomatic treatment
     Dosage: 600 MG, 1X
     Route: 058
     Dates: start: 20230824, end: 20230824

REACTIONS (3)
  - Haemorrhage subcutaneous [Recovering/Resolving]
  - Pruritus [Recovered/Resolved]
  - Rash macular [Recovering/Resolving]

NARRATIVE: CASE EVENT DATE: 20230825
